FAERS Safety Report 15908524 (Version 1)
Quarter: 2019Q1

REPORT INFORMATION
  Report Type: Spontaneous
  Country: US (occurrence: US)
  Receive Date: 20190204
  Receipt Date: 20190204
  Transmission Date: 20190417
  Serious: No
  Sender: FDA-Public Use
  Company Number: US-ABBVIE-18K-163-2286453-00

PATIENT

DRUGS (1)
  1. HUMIRA [Suspect]
     Active Substance: ADALIMUMAB
     Indication: JUVENILE IDIOPATHIC ARTHRITIS
     Route: 058
     Dates: start: 2017

REACTIONS (12)
  - Injection site pruritus [Unknown]
  - Immune system disorder [Unknown]
  - Grip strength decreased [Unknown]
  - Injection site pain [Unknown]
  - Feeling hot [Recovered/Resolved]
  - Pain in extremity [Recovered/Resolved]
  - Arthralgia [Unknown]
  - Gait disturbance [Unknown]
  - Injection site papule [Unknown]
  - Malaise [Unknown]
  - Injection site swelling [Unknown]
  - Peripheral swelling [Recovered/Resolved]
